FAERS Safety Report 8884752 (Version 1)
Quarter: 2012Q4

REPORT INFORMATION
  Report Type: 
  Country: US (occurrence: US)
  Receive Date: 20121102
  Receipt Date: 20121102
  Transmission Date: 20130627
  Serious: No
  Sender: FDA-Public Use
  Company Number: US-ASTRAZENECA-2012SE27729

PATIENT
  Age: 57 Year
  Sex: Female
  Weight: 52.2 kg

DRUGS (1)
  1. OMEPRAZOLE [Suspect]
     Route: 048

REACTIONS (8)
  - Laryngitis [Unknown]
  - Dysphagia [Unknown]
  - Thyroid disorder [Unknown]
  - Dysphonia [Unknown]
  - Nasopharyngitis [Unknown]
  - Dysgeusia [Unknown]
  - Stomatitis [Unknown]
  - Intentional drug misuse [Unknown]
